FAERS Safety Report 16688435 (Version 2)
Quarter: 2019Q3

REPORT INFORMATION
  Report Type: Spontaneous
  Country: US (occurrence: US)
  Receive Date: 20190809
  Receipt Date: 20190916
  Transmission Date: 20191004
  Serious: Yes (Other)
  Sender: FDA-Public Use
  Company Number: US-BAYER-2019-144574

PATIENT
  Sex: Male

DRUGS (9)
  1. XOFIGO [Suspect]
     Active Substance: RADIUM RA-223 DICHLORIDE
     Indication: HORMONE-REFRACTORY PROSTATE CANCER
     Dosage: 201.64 MCCI
     Route: 042
     Dates: start: 20190207, end: 20190207
  2. XOFIGO [Suspect]
     Active Substance: RADIUM RA-223 DICHLORIDE
     Indication: HORMONE-REFRACTORY PROSTATE CANCER
     Dosage: 1 SYRINGE
     Route: 042
     Dates: start: 20190411, end: 20190411
  3. XOFIGO [Suspect]
     Active Substance: RADIUM RA-223 DICHLORIDE
     Indication: HORMONE-REFRACTORY PROSTATE CANCER
     Dosage: 1 SYRINGE
     Route: 042
     Dates: start: 20190613, end: 20190613
  4. XOFIGO [Suspect]
     Active Substance: RADIUM RA-223 DICHLORIDE
     Indication: HORMONE-REFRACTORY PROSTATE CANCER
     Dosage: 1 SYRINGE
     Route: 042
     Dates: start: 20190808, end: 20190808
  5. MS CONTIN [Concomitant]
     Active Substance: MORPHINE SULFATE
     Indication: PAIN IN EXTREMITY
     Dosage: 15 MG, BID
     Route: 048
  6. XOFIGO [Suspect]
     Active Substance: RADIUM RA-223 DICHLORIDE
     Indication: HORMONE-REFRACTORY PROSTATE CANCER
     Dosage: 200.2 MCCI
     Route: 042
     Dates: start: 20190509, end: 20190509
  7. OXYCODONE [Concomitant]
     Active Substance: OXYCODONE
     Indication: PAIN IN EXTREMITY
  8. PERCOCET [Concomitant]
     Active Substance: ACETAMINOPHEN\OXYCODONE HYDROCHLORIDE
     Indication: PAIN IN EXTREMITY
  9. XOFIGO [Suspect]
     Active Substance: RADIUM RA-223 DICHLORIDE
     Indication: METASTASES TO BONE
     Dosage: 2 SYRINGES
     Route: 042
     Dates: start: 20190307, end: 20190307

REACTIONS (3)
  - Pelvic pain [None]
  - Neutrophil count decreased [Not Recovered/Not Resolved]
  - Pain in jaw [None]
